FAERS Safety Report 20916717 (Version 5)
Quarter: 2022Q4

REPORT INFORMATION
  Report Type: Report from Study
  Country: CN (occurrence: CN)
  Receive Date: 20220605
  Receipt Date: 20221004
  Transmission Date: 20230112
  Serious: Yes (Other)
  Sender: FDA-Public Use
  Company Number: CN-JNJFOC-20220552251

PATIENT
  Age: 64 Year
  Sex: Male
  Weight: 86 kg

DRUGS (4)
  1. ERDAFITINIB [Suspect]
     Active Substance: ERDAFITINIB
     Indication: Bladder transitional cell carcinoma
     Route: 048
     Dates: start: 20220426, end: 20220522
  2. GEMCITABINE [Suspect]
     Active Substance: GEMCITABINE
     Indication: Bladder transitional cell carcinoma
     Route: 043
     Dates: start: 20210928, end: 20220217
  3. GEMCITABINE [Suspect]
     Active Substance: GEMCITABINE
     Route: 065
  4. NIFEDIPINE SUSTAINED-RELEASE TABLETS [Concomitant]
     Indication: Hypertension
     Route: 048
     Dates: start: 20220501

REACTIONS (1)
  - Central serous chorioretinopathy [Recovered/Resolved]

NARRATIVE: CASE EVENT DATE: 20220523
